FAERS Safety Report 24026165 (Version 3)
Quarter: 2024Q3

REPORT INFORMATION
  Report Type: Report from Study
  Country: CN (occurrence: CN)
  Receive Date: 20240628
  Receipt Date: 20240710
  Transmission Date: 20241016
  Serious: No
  Sender: ROCHE
  Company Number: CN-ROCHE-2983446

PATIENT
  Age: 51 Year
  Sex: Female
  Weight: 79.0 kg

DRUGS (16)
  1. ALECTINIB [Suspect]
     Active Substance: ALECTINIB
     Indication: Non-small cell lung cancer
     Route: 048
     Dates: start: 20210805
  2. PEMETREXED DISODIUM [Concomitant]
     Active Substance: PEMETREXED DISODIUM
     Dates: start: 20220426, end: 20220526
  3. PEMETREXED DISODIUM [Concomitant]
     Active Substance: PEMETREXED DISODIUM
     Dates: start: 20220426, end: 20220526
  4. PEMETREXED DISODIUM [Concomitant]
     Active Substance: PEMETREXED DISODIUM
     Dates: start: 20220403, end: 2022
  5. PEMETREXED DISODIUM [Concomitant]
     Active Substance: PEMETREXED DISODIUM
     Dates: start: 20220403, end: 2022
  6. SINTILIMAB [Concomitant]
     Active Substance: SINTILIMAB
     Dates: start: 20220426, end: 20220526
  7. SINTILIMAB [Concomitant]
     Active Substance: SINTILIMAB
     Dates: start: 20220403, end: 2022
  8. SINTILIMAB [Concomitant]
     Active Substance: SINTILIMAB
     Dates: start: 20220403, end: 2022
  9. LACTULOSE [Concomitant]
     Active Substance: LACTULOSE
     Route: 048
  10. CIMETIDINE [Concomitant]
     Active Substance: CIMETIDINE
  11. MANNITOL [Concomitant]
     Active Substance: MANNITOL
  12. METOCLOPRAMIDE [Concomitant]
     Active Substance: METOCLOPRAMIDE
  13. DEXAMETHASONE SODIUM PHOSPHATE [Concomitant]
     Active Substance: DEXAMETHASONE PHOSPHATE\DEXAMETHASONE SODIUM PHOSPHATE
  14. OMEPRAZOLE SODIUM [Concomitant]
     Active Substance: OMEPRAZOLE SODIUM
  15. ONDANSETRON HYDROCHLORIDE [Concomitant]
     Active Substance: ONDANSETRON HYDROCHLORIDE
  16. ROXATIDINE ACETATE HYDROCHLORIDE [Concomitant]
     Active Substance: ROXATIDINE ACETATE HYDROCHLORIDE

REACTIONS (1)
  - Blood bilirubin increased [Not Recovered/Not Resolved]

NARRATIVE: CASE EVENT DATE: 20211008
